FAERS Safety Report 13565828 (Version 3)
Quarter: 2017Q2

REPORT INFORMATION
  Report Type: Report from Study
  Country: US (occurrence: US)
  Receive Date: 20170520
  Receipt Date: 20170628
  Transmission Date: 20170830
  Serious: Yes (Other)
  Sender: FDA-Public Use
  Company Number: US-AMGEN-USASL2017074873

PATIENT
  Age: 63 Year
  Sex: Male

DRUGS (1)
  1. ENBREL [Suspect]
     Active Substance: ETANERCEPT
     Indication: RHEUMATOID ARTHRITIS
     Dosage: UNK
     Route: 065

REACTIONS (8)
  - Hepatitis C [Unknown]
  - Chronic obstructive pulmonary disease [Unknown]
  - Mobility decreased [Unknown]
  - Gait disturbance [Unknown]
  - Gynaecomastia [Unknown]
  - Lower limb fracture [Unknown]
  - Musculoskeletal disorder [Unknown]
  - Self-injurious ideation [Unknown]
